FAERS Safety Report 11565853 (Version 1)
Quarter: 2015Q3

REPORT INFORMATION
  Report Type: Report from Study
  Country: US (occurrence: US)
  Receive Date: 20150928
  Receipt Date: 20150928
  Transmission Date: 20151125
  Serious: No
  Sender: FDA-Public Use
  Company Number: US-EXELIXIS-CABO-14004953

PATIENT
  Age: 75 Year
  Sex: Male

DRUGS (11)
  1. COMETRIQ [Suspect]
     Active Substance: CABOZANTINIB S-MALATE
     Indication: THYROID CANCER
     Dosage: 140 MG, QD
     Route: 048
     Dates: start: 20141108, end: 20141123
  2. LEVOTHYROXINE. [Concomitant]
     Active Substance: LEVOTHYROXINE
  3. TYLENOL [Concomitant]
     Active Substance: ACETAMINOPHEN
  4. OMEGA 3 [Concomitant]
     Active Substance: OMEGA-3 FATTY ACIDS
  5. COMETRIQ [Suspect]
     Active Substance: CABOZANTINIB S-MALATE
     Dosage: 60 MG, QD
     Route: 048
     Dates: start: 20150128, end: 20150516
  6. PREVACID [Concomitant]
     Active Substance: LANSOPRAZOLE
  7. VITAMIN B12 [Concomitant]
     Active Substance: CYANOCOBALAMIN
  8. VITAMIN D [Concomitant]
     Active Substance: CHOLECALCIFEROL
  9. COMETRIQ [Suspect]
     Active Substance: CABOZANTINIB S-MALATE
     Dosage: 80 MG, QOD
     Route: 048
     Dates: start: 20150122
  10. COMETRIQ [Suspect]
     Active Substance: CABOZANTINIB S-MALATE
     Dosage: 80 MG, UNK
     Route: 048
     Dates: start: 20150717
  11. ACETAMINOPHEN. [Concomitant]
     Active Substance: ACETAMINOPHEN

REACTIONS (20)
  - Diarrhoea [Not Recovered/Not Resolved]
  - Stomatitis [Not Recovered/Not Resolved]
  - Asthenia [Unknown]
  - Musculoskeletal chest pain [Unknown]
  - Dizziness [Unknown]
  - Blister [Not Recovered/Not Resolved]
  - Abdominal pain upper [Not Recovered/Not Resolved]
  - Headache [Unknown]
  - Musculoskeletal stiffness [Unknown]
  - Faeces discoloured [Unknown]
  - Pain in extremity [Unknown]
  - Abdominal discomfort [Unknown]
  - Decreased appetite [Unknown]
  - Myalgia [Unknown]
  - Gastrointestinal disorder [Unknown]
  - Back pain [Unknown]
  - Fatigue [Unknown]
  - Ageusia [Unknown]
  - Laboratory test abnormal [Unknown]
  - Weight decreased [Unknown]

NARRATIVE: CASE EVENT DATE: 20141121
